FAERS Safety Report 4504180-9 (Version None)
Quarter: 2004Q4

REPORT INFORMATION
  Report Type: 
  Country: None (occurrence: None)
  Receive Date: 20041118
  Receipt Date: 20041110
  Transmission Date: 20050328
  Serious: Yes (Hospitalization, Other)
  Sender: FDA-Public Use
  Company Number: US-JNJFOC-20041103026

PATIENT
  Sex: Male

DRUGS (5)
  1. DURAGESIC [Suspect]
     Route: 062
     Dates: start: 20000101
  2. AMBIEN [Concomitant]
     Route: 049
  3. TRAZODONE HCL [Concomitant]
     Route: 049
  4. LAMICTAL [Concomitant]
     Route: 049
  5. TESTOSTERONE [Concomitant]
     Route: 030

REACTIONS (15)
  - APPLICATION SITE ERYTHEMA [None]
  - BLINDNESS TRANSIENT [None]
  - BLOOD TESTOSTERONE DECREASED [None]
  - CARDIAC OPERATION [None]
  - CEREBROVASCULAR ACCIDENT [None]
  - FOREIGN BODY TRAUMA [None]
  - HYPERHIDROSIS [None]
  - HYPERSOMNIA [None]
  - IATROGENIC INJURY [None]
  - LUNG INJURY [None]
  - MEDICATION ERROR [None]
  - PAIN [None]
  - PNEUMOTHORAX TRAUMATIC [None]
  - ROAD TRAFFIC ACCIDENT [None]
  - THERAPEUTIC RESPONSE DECREASED [None]
